FAERS Safety Report 5938443-7 (Version None)
Quarter: 2008Q4

REPORT INFORMATION
  Report Type: 
  Country: None (occurrence: None)
  Receive Date: 20081103
  Receipt Date: 20081020
  Transmission Date: 20090506
  Serious: Yes (Other)
  Sender: FDA-Public Use
  Company Number: CA-ROCHE-592532

PATIENT
  Age: 36 Year
  Sex: Female

DRUGS (5)
  1. CELLCEPT [Suspect]
     Route: 065
  2. PROGRAF [Suspect]
     Dosage: 2.5 MG IN MORNING AND 1.5 MG IN EVENING
     Route: 065
  3. PREDNISONE TAB [Suspect]
     Route: 065
  4. PREDNISONE TAB [Suspect]
     Route: 065
  5. BASILIXIMAB [Suspect]
     Indication: DRUG USE FOR UNKNOWN INDICATION
     Dosage: GIVEN APPROX. EVERY 4 TO 6 WEEKS FOR 1ST 6 MONTHS AND EVERY 8 WEEKS THEREAFTER
     Route: 042

REACTIONS (5)
  - DIARRHOEA [None]
  - GASTROINTESTINAL DISORDER [None]
  - LEUKOPENIA [None]
  - NEPHROPATHY TOXIC [None]
  - RENAL TUBULAR NECROSIS [None]
